FAERS Safety Report 25170335 (Version 1)
Quarter: 2025Q2

REPORT INFORMATION
  Report Type: Spontaneous
  Country: US (occurrence: US)
  Receive Date: 20250408
  Receipt Date: 20250408
  Transmission Date: 20250717
  Serious: Yes (Death, Other)
  Sender: AMGEN
  Company Number: US-AMGEN-USASP2025063306

PATIENT

DRUGS (6)
  1. TRASTUZUMAB [Suspect]
     Active Substance: TRASTUZUMAB
     Indication: HER2 positive breast cancer
     Route: 040
  2. TRASTUZUMAB [Suspect]
     Active Substance: TRASTUZUMAB
     Route: 040
  3. PERTUZUMAB [Suspect]
     Active Substance: PERTUZUMAB
     Indication: HER2 positive breast cancer
     Route: 065
  4. PERTUZUMAB [Suspect]
     Active Substance: PERTUZUMAB
     Route: 065
  5. ABEMACICLIB [Concomitant]
     Active Substance: ABEMACICLIB
     Indication: HER2 positive breast cancer
     Dosage: 150 MILLIGRAM, Q12H
     Route: 048
  6. ABEMACICLIB [Concomitant]
     Active Substance: ABEMACICLIB
     Dosage: 200 MILLIGRAM, Q12H
     Route: 048

REACTIONS (33)
  - Death [Fatal]
  - HER2 positive breast cancer [Unknown]
  - Oropharyngeal pain [Unknown]
  - Hypophosphataemia [Unknown]
  - Aspartate aminotransferase increased [Unknown]
  - Blood creatinine increased [Unknown]
  - Alanine aminotransferase increased [Unknown]
  - Dermatitis acneiform [Unknown]
  - Hypokalaemia [Unknown]
  - Alopecia [Unknown]
  - Diarrhoea [Unknown]
  - Fatigue [Unknown]
  - Neutropenia [Unknown]
  - Nausea [Unknown]
  - Anaemia [Unknown]
  - Abdominal pain [Unknown]
  - Decreased appetite [Unknown]
  - Leukopenia [Unknown]
  - Rash [Unknown]
  - Vomiting [Unknown]
  - Stomatitis [Unknown]
  - Cough [Unknown]
  - Dyspnoea [Unknown]
  - Thrombocytopenia [Unknown]
  - Dysgeusia [Unknown]
  - Hot flush [Unknown]
  - Pruritus [Unknown]
  - Hypotension [Unknown]
  - Myalgia [Unknown]
  - Treatment noncompliance [Unknown]
  - Adverse event [Unknown]
  - Therapy interrupted [Unknown]
  - Off label use [Unknown]
